FAERS Safety Report 25353417 (Version 2)
Quarter: 2025Q2

REPORT INFORMATION
  Report Type: Spontaneous
  Country: US (occurrence: US)
  Receive Date: 20250523
  Receipt Date: 20250604
  Transmission Date: 20250717
  Serious: No
  Sender: FRESENIUS KABI
  Company Number: US-FreseniusKabi-FK202507074

PATIENT
  Sex: Female

DRUGS (5)
  1. FLUOROURACIL [Suspect]
     Active Substance: FLUOROURACIL
     Indication: Colon cancer
     Dosage: FOLFOX INFUSIONS?FORM OF ADMINISTRATION: INFUSION?EVERY TWO WEEKS
     Dates: start: 20250506
  2. OXALIPLATIN [Suspect]
     Active Substance: OXALIPLATIN
     Indication: Colon cancer
     Dosage: FOLFOX INFUSIONS?FORM OF ADMINISTRATION: INFUSION?EVERY TWO WEEKS
     Dates: start: 20250506
  3. LEUCOVORIN CALCIUM [Suspect]
     Active Substance: LEUCOVORIN CALCIUM
     Indication: Colon cancer
     Dosage: FOLFOX INFUSIONS?FORM OF ADMINISTRATION: INFUSION?EVERY TWO WEEKS
     Dates: start: 20250506
  4. BRAFTOVI [Suspect]
     Active Substance: ENCORAFENIB
     Indication: Colon cancer
     Dosage: 300 MG (4-75 MG CAPSULES)?FORM OF ADMINISTRATION: CAPSULE?THERAPY ONGOING
     Route: 048
     Dates: start: 20250506
  5. ERBITUX [Suspect]
     Active Substance: CETUXIMAB
     Indication: Product used for unknown indication
     Dosage: FORM OF ADMINISTRATION: INFUSION?EVERY TWO WEEKS
     Dates: start: 20250506

REACTIONS (2)
  - Nausea [Unknown]
  - Neuropathy peripheral [Unknown]
